FAERS Safety Report 24603540 (Version 1)
Quarter: 2024Q4

REPORT INFORMATION
  Report Type: Spontaneous
  Country: US (occurrence: None)
  Receive Date: 20241109
  Receipt Date: 20241109
  Transmission Date: 20250115
  Serious: Yes (Disabling)
  Sender: Public
  Company Number: None

PATIENT
  Age: 54 Year
  Sex: Female
  Weight: 88.2 kg

DRUGS (18)
  1. MOUNJARO [Suspect]
     Active Substance: TIRZEPATIDE
     Indication: Glucose tolerance impaired
  2. Pravacid [Concomitant]
  3. Effexor XR [Concomitant]
  4. LAMICTAL [Concomitant]
     Active Substance: LAMOTRIGINE
  5. OXYBUTYNIN [Concomitant]
  6. AMLODIPINE [Concomitant]
     Active Substance: AMLODIPINE BESYLATE
  7. SYNTHROID [Concomitant]
  8. VIT D [Concomitant]
  9. VIT B12 [Concomitant]
  10. COENZYME Q10 [Concomitant]
     Active Substance: DIETARY SUPPLEMENT\UBIDECARENONE
  11. ROSUVASTATIN [Concomitant]
     Active Substance: ROSUVASTATIN
  12. LINZESS [Concomitant]
     Active Substance: LINACLOTIDE
  13. ESTRADIOL [Concomitant]
     Active Substance: ESTRADIOL
  14. SKYRIZI [Concomitant]
     Active Substance: RISANKIZUMAB-RZAA
  15. TRULANCE [Concomitant]
     Active Substance: PLECANATIDE
  16. ZANAFLEX [Concomitant]
     Active Substance: TIZANIDINE HYDROCHLORIDE
  17. KLONOPIN [Concomitant]
  18. BELSOMRA [Concomitant]
     Active Substance: SUVOREXANT

REACTIONS (3)
  - Inability to afford medication [None]
  - Therapy interrupted [None]
  - Psoriasis [None]

NARRATIVE: CASE EVENT DATE: 20230321
